FAERS Safety Report 9914386 (Version 1)
Quarter: 2014Q1

REPORT INFORMATION
  Report Type: Spontaneous
  Country: US (occurrence: None)
  Receive Date: 20140219
  Receipt Date: 20140219
  Transmission Date: 20141002
  Serious: Yes (Other)
  Sender: FDA-Public Use
  Company Number: None

PATIENT
  Age: 58 Year
  Sex: Female
  Weight: 83.92 kg

DRUGS (1)
  1. DULOXETINE HCL [Suspect]
     Indication: ARTHRITIS
     Route: 048
     Dates: start: 20140111, end: 20140213

REACTIONS (4)
  - Headache [None]
  - Depression [None]
  - Suicidal ideation [None]
  - Product substitution issue [None]
